FAERS Safety Report 7668695-7 (Version None)
Quarter: 2011Q3

REPORT INFORMATION
  Report Type: 
  Country: None (occurrence: None)
  Receive Date: 20110808
  Receipt Date: 20110726
  Transmission Date: 20111222
  Serious: No
  Sender: FDA-Public Use
  Company Number: US-B.I. PHARMACEUTICALS,INC./RIDGEFIELD-2011-BP-18471BP

PATIENT
  Age: 84 Year
  Sex: Female

DRUGS (6)
  1. LEVOXYL [Concomitant]
     Dosage: 100 MCG
  2. SIMVASTATIN [Concomitant]
     Dosage: 20 MG
  3. PRADAXA [Suspect]
     Indication: ATRIAL FIBRILLATION
     Dosage: 300 MG
  4. VIT D [Concomitant]
     Dosage: 1000 U
  5. ATENOLOL [Concomitant]
     Dosage: 50 MG
  6. PEPCID [Concomitant]
     Dosage: 20 MG

REACTIONS (4)
  - INTERNATIONAL NORMALISED RATIO INCREASED [None]
  - ACTIVATED PARTIAL THROMBOPLASTIN TIME PROLONGED [None]
  - ATRIAL FIBRILLATION [None]
  - PROTHROMBIN TIME PROLONGED [None]
